FAERS Safety Report 5073778-4 (Version None)
Quarter: 2006Q3

REPORT INFORMATION
  Report Type: 
  Country: None (occurrence: None)
  Receive Date: 20060803
  Receipt Date: 20060721
  Transmission Date: 20061208
  Serious: Yes (Death, Life-Threatening, Hospitalization, Other)
  Sender: FDA-Public Use
  Company Number: 2006047335

PATIENT
  Age: 67 Year
  Sex: Male
  Weight: 100 kg

DRUGS (3)
  1. ZYVOX [Suspect]
     Indication: INTERVERTEBRAL DISCITIS
     Dosage: 1200 MG, INTRAVENOUS
     Route: 042
     Dates: start: 20060101, end: 20060330
  2. ALL OTHER THERAPEUTIC PRODUCTS (ALL OTHER THERAPEUTIC PRODUCTS) [Concomitant]
  3. INSULIN [Concomitant]

REACTIONS (16)
  - ABSCESS [None]
  - ACUTE RESPIRATORY FAILURE [None]
  - ANAEMIA [None]
  - ANXIETY [None]
  - CARDIAC DEATH [None]
  - CARDIAC FAILURE [None]
  - CHRONIC OBSTRUCTIVE PULMONARY DISEASE [None]
  - CONDITION AGGRAVATED [None]
  - DIABETES MELLITUS [None]
  - GENERAL PHYSICAL CONDITION ABNORMAL [None]
  - HALLUCINATION [None]
  - HYPOGLYCAEMIA [None]
  - INFLAMMATION [None]
  - PSYCHOTIC DISORDER [None]
  - PULMONARY EMBOLISM [None]
  - STAPHYLOCOCCAL INFECTION [None]
